FAERS Safety Report 20255459 (Version 2)
Quarter: 2023Q4

REPORT INFORMATION
  Report Type: Report from Study
  Country: CA (occurrence: CA)
  Receive Date: 20211230
  Receipt Date: 20231116
  Transmission Date: 20240110
  Serious: Yes (Disabling, Other)
  Sender: FDA-Public Use
  Company Number: None

PATIENT
  Age: 50 Year
  Sex: Female

DRUGS (21)
  1. AMLODIPINE BESYLATE [Interacting]
     Active Substance: AMLODIPINE BESYLATE
     Indication: Product used for unknown indication
     Route: 065
  2. METHOTREXATE [Interacting]
     Active Substance: METHOTREXATE
     Indication: Product used for unknown indication
     Route: 065
  3. ATENOLOL [Interacting]
     Active Substance: ATENOLOL
     Indication: Product used for unknown indication
     Route: 048
  4. CYCLOSPORINE [Interacting]
     Active Substance: CYCLOSPORINE
     Indication: Product used for unknown indication
     Route: 065
  5. SECUKINUMAB [Interacting]
     Active Substance: SECUKINUMAB
     Indication: Psoriasis
     Route: 058
  6. IRBESARTAN [Interacting]
     Active Substance: IRBESARTAN
     Indication: Product used for unknown indication
     Route: 065
  7. TRIAMTERENE [Interacting]
     Active Substance: TRIAMTERENE
     Indication: Product used for unknown indication
     Route: 065
  8. ASPIRIN [Concomitant]
     Active Substance: ASPIRIN
  9. BETAMETHASONE\CALCIPOTRIENE [Concomitant]
     Active Substance: BETAMETHASONE\CALCIPOTRIENE
  10. CALCIUM [Concomitant]
     Active Substance: CALCIUM
  11. COAL TAR [Concomitant]
     Active Substance: COAL TAR
  12. ERGOCALCIFEROL [Concomitant]
     Active Substance: ERGOCALCIFEROL
  13. HUMIRA [Concomitant]
     Active Substance: ADALIMUMAB
     Route: 058
  14. METFORMIN HYDROCHLORIDE [Concomitant]
     Active Substance: METFORMIN HYDROCHLORIDE
  15. OMEGA-3 FATTY ACIDS [Concomitant]
     Active Substance: OMEGA-3 FATTY ACIDS
  16. PSORALEN [Concomitant]
     Active Substance: PSORALEN
  17. RABEPRAZOLE SODIUM [Concomitant]
     Active Substance: RABEPRAZOLE SODIUM
  18. STELARA [Concomitant]
     Active Substance: USTEKINUMAB
     Route: 058
  19. BETAMETHASONE DIPROPIONATE [Concomitant]
     Active Substance: BETAMETHASONE DIPROPIONATE
  20. METFORMIN HYDROCHLORIDE [Concomitant]
     Active Substance: METFORMIN HYDROCHLORIDE
  21. TOLBUTAMIDE SODIUM [Concomitant]
     Active Substance: TOLBUTAMIDE SODIUM

REACTIONS (27)
  - Abdominal discomfort [Not Recovered/Not Resolved]
  - Arthralgia [Not Recovered/Not Resolved]
  - Back pain [Not Recovered/Not Resolved]
  - Blood pressure diastolic decreased [Not Recovered/Not Resolved]
  - Blood pressure increased [Not Recovered/Not Resolved]
  - Contusion [Not Recovered/Not Resolved]
  - Depressed mood [Not Recovered/Not Resolved]
  - Diabetic neuropathy [Not Recovered/Not Resolved]
  - Drug ineffective [Unknown]
  - Drug interaction [Unknown]
  - Dry skin [Not Recovered/Not Resolved]
  - Fall [Unknown]
  - Fatigue [Not Recovered/Not Resolved]
  - Feeling abnormal [Not Recovered/Not Resolved]
  - Fungal infection [Not Recovered/Not Resolved]
  - General physical health deterioration [Not Recovered/Not Resolved]
  - Hypersomnia [Not Recovered/Not Resolved]
  - Inappropriate schedule of product administration [Unknown]
  - Injection site pain [Not Recovered/Not Resolved]
  - Joint range of motion decreased [Not Recovered/Not Resolved]
  - Malaise [Not Recovered/Not Resolved]
  - Nasopharyngitis [Not Recovered/Not Resolved]
  - Pain [Not Recovered/Not Resolved]
  - Pain in extremity [Not Recovered/Not Resolved]
  - Pruritus [Not Recovered/Not Resolved]
  - Psoriasis [Not Recovered/Not Resolved]
  - Skin burning sensation [Not Recovered/Not Resolved]
